FAERS Safety Report 16373841 (Version 1)
Quarter: 2019Q2

REPORT INFORMATION
  Report Type: Spontaneous
  Country: IT (occurrence: IT)
  Receive Date: 20190530
  Receipt Date: 20190530
  Transmission Date: 20190711
  Serious: Yes (Disabling, Other)
  Sender: FDA-Public Use
  Company Number: IT-ASTRAZENECA-2019SE76505

PATIENT
  Age: 72 Year
  Sex: Male

DRUGS (11)
  1. ATORVASTATIN [Interacting]
     Active Substance: ATORVASTATIN
     Indication: HYPERCHOLESTEROLAEMIA
     Route: 065
  2. NITROGLYCERIN. [Concomitant]
     Active Substance: NITROGLYCERIN
     Route: 062
  3. ACETYLSALICYLATE CALCIUM [Interacting]
     Active Substance: ASPIRIN CALCIUM
     Route: 065
  4. SERTRALINE [Interacting]
     Active Substance: SERTRALINE HYDROCHLORIDE
     Indication: NEUROPSYCHIATRIC SYMPTOMS
     Route: 065
  5. VALSARTAN. [Concomitant]
     Active Substance: VALSARTAN
     Route: 065
  6. OMEPRAZOLE. [Suspect]
     Active Substance: OMEPRAZOLE
     Route: 048
  7. RANOLAZINE. [Interacting]
     Active Substance: RANOLAZINE
     Indication: ANGINA PECTORIS
     Route: 065
  8. QUETIAPINE. [Interacting]
     Active Substance: QUETIAPINE
     Indication: NEUROPSYCHIATRIC SYMPTOMS
     Route: 048
  9. ALLOPURINOL. [Interacting]
     Active Substance: ALLOPURINOL
     Route: 065
  10. BISOPROLOL [Interacting]
     Active Substance: BISOPROLOL
     Route: 065
  11. FUROSEMIDE. [Interacting]
     Active Substance: FUROSEMIDE
     Indication: DIURETIC THERAPY
     Dosage: 25 MG/TWICE WEEKLY
     Route: 065

REACTIONS (2)
  - Rhabdomyolysis [Recovered/Resolved]
  - Drug interaction [Recovered/Resolved]
